FAERS Safety Report 9980628 (Version 1)
Quarter: 2014Q1

REPORT INFORMATION
  Report Type: Spontaneous
  Country: FR (occurrence: FR)
  Receive Date: 20140307
  Receipt Date: 20140307
  Transmission Date: 20141002
  Serious: Yes (Life-Threatening)
  Sender: FDA-Public Use
  Company Number: FR-ROCHE-1357438

PATIENT
  Age: 58 Year
  Sex: Male

DRUGS (32)
  1. MABTHERA [Suspect]
     Indication: B-CELL LYMPHOMA
     Route: 041
     Dates: start: 20130823
  2. MABTHERA [Suspect]
     Route: 041
     Dates: start: 20130925
  3. ALLOPURINOL [Suspect]
     Indication: PRODUCT USED FOR UNKNOWN INDICATION
     Route: 048
     Dates: end: 20130917
  4. GRANOCYTE 34 [Suspect]
     Indication: NEUTROPENIA
     Route: 058
     Dates: start: 20130830, end: 20130902
  5. LEVACT (FRANCE) [Suspect]
     Indication: B-CELL LYMPHOMA
     Route: 042
     Dates: start: 20130822
  6. LEVACT (FRANCE) [Suspect]
     Route: 042
     Dates: start: 20131009
  7. ORBENINE [Suspect]
     Indication: PRODUCT USED FOR UNKNOWN INDICATION
     Route: 048
     Dates: start: 20130803, end: 20130916
  8. IRBESARTAN ZENTIVA [Suspect]
     Indication: HYPERTENSION
     Route: 048
     Dates: end: 20130919
  9. ACEBUTOLOL [Suspect]
     Indication: HYPERTENSION
     Route: 048
     Dates: end: 20130918
  10. CYCLOPHOSPHAMIDE [Concomitant]
  11. DOXORUBICINE [Concomitant]
  12. VINCRISTINE [Concomitant]
  13. PREDNISONE [Concomitant]
  14. COAPROVEL [Concomitant]
     Indication: TOBACCO POISONING
     Dosage: 150/12.5
     Route: 065
  15. INEXIUM [Concomitant]
     Route: 065
  16. KARDEGIC [Concomitant]
     Route: 065
  17. SECTRAL [Concomitant]
     Route: 065
  18. TAHOR [Concomitant]
     Route: 065
  19. ZYLORIC [Concomitant]
     Route: 065
  20. VANCOMYCINE [Concomitant]
  21. FORTUM [Concomitant]
  22. LOVENOX [Concomitant]
     Dosage: 0.8 TWICE
     Route: 065
  23. INNOHEP [Concomitant]
     Route: 065
     Dates: start: 20130807
  24. DEXAMETHASONE [Concomitant]
     Route: 065
     Dates: start: 20130827
  25. CYTARABINE [Concomitant]
  26. OXALIPLATIN [Concomitant]
     Route: 065
     Dates: start: 20130727
  27. ARANESP [Concomitant]
  28. LORATADINE [Concomitant]
     Route: 065
  29. PYOSTACINE [Concomitant]
     Route: 065
     Dates: start: 20130909
  30. PAMIDRONATE [Concomitant]
     Route: 065
     Dates: start: 20130920
  31. HYDROXYZINE [Concomitant]
  32. CETIRIZINE [Concomitant]

REACTIONS (1)
  - Acute generalised exanthematous pustulosis [Recovered/Resolved]
